FAERS Safety Report 17364580 (Version 1)
Quarter: 2020Q1

REPORT INFORMATION
  Report Type: Spontaneous
  Country: US (occurrence: US)
  Receive Date: 20200204
  Receipt Date: 20200204
  Transmission Date: 20200409
  Serious: Yes (Death, Hospitalization)
  Sender: FDA-Public Use
  Company Number: US-ALVOGEN-2020-ALVOGEN-102510

PATIENT
  Age: 43 Year
  Sex: Male

DRUGS (4)
  1. AMPHETAMINE/DEXTROAMPHETAMINE [Suspect]
     Active Substance: AMPHETAMINE\DEXTROAMPHETAMINE
     Indication: SUICIDE ATTEMPT
     Route: 048
  2. METAMFETAMINE HYDROCHLORIDE [Suspect]
     Active Substance: METHAMPHETAMINE HYDROCHLORIDE
     Indication: SUICIDE ATTEMPT
     Route: 048
  3. FENTANYL. [Suspect]
     Active Substance: FENTANYL
     Indication: SUICIDE ATTEMPT
     Route: 048
  4. DIAZEPAM. [Suspect]
     Active Substance: DIAZEPAM
     Indication: SUICIDE ATTEMPT
     Route: 048

REACTIONS (1)
  - Completed suicide [Fatal]
